FAERS Safety Report 20412833 (Version 1)
Quarter: 2022Q1

REPORT INFORMATION
  Report Type: Spontaneous
  Country: AT (occurrence: AT)
  Receive Date: 20220201
  Receipt Date: 20220201
  Transmission Date: 20220424
  Serious: Yes (Hospitalization, Other)
  Sender: FDA-Public Use
  Company Number: AT-PFIZER INC-202200129102

PATIENT
  Sex: Male

DRUGS (1)
  1. TAFAMIDIS MEGLUMINE [Suspect]
     Active Substance: TAFAMIDIS MEGLUMINE
     Indication: Hereditary neuropathic amyloidosis
     Dosage: UNK
     Dates: start: 2017

REACTIONS (5)
  - Cardiomyopathy [Unknown]
  - Condition aggravated [Unknown]
  - Amyloidosis [Unknown]
  - Myopathy [Unknown]
  - Hypokinesia [Unknown]
